FAERS Safety Report 7710069-4 (Version None)
Quarter: 2011Q3

REPORT INFORMATION
  Report Type: 
  Country: None (occurrence: None)
  Receive Date: 20110825
  Receipt Date: 20110819
  Transmission Date: 20111222
  Serious: Yes (Death, Other)
  Sender: FDA-Public Use
  Company Number: PHHY2011CN75216

PATIENT
  Age: 69 Year
  Sex: Male

DRUGS (4)
  1. STEROIDS NOS [Concomitant]
     Dosage: 60 MG/ DAY
  2. CORTICOSTEROID NOS [Concomitant]
     Indication: INFLAMMATION
  3. MYCOPHENOLATE MOFETIL [Suspect]
     Dosage: 100 MG PER DAY
  4. PREDNISONE [Concomitant]
     Dosage: UNK UKN, UNK

REACTIONS (9)
  - CARDIAC FAILURE [None]
  - PNEUMOCYSTIS JIROVECI PNEUMONIA [None]
  - COAGULOPATHY [None]
  - RESPIRATORY FAILURE [None]
  - SEPTIC SHOCK [None]
  - LUNG INFILTRATION [None]
  - RENAL FAILURE [None]
  - MULTI-ORGAN FAILURE [None]
  - HEPATIC FAILURE [None]
